FAERS Safety Report 22257008 (Version 1)
Quarter: 2023Q2

REPORT INFORMATION
  Report Type: Spontaneous
  Country: ES (occurrence: ES)
  Receive Date: 20230427
  Receipt Date: 20230427
  Transmission Date: 20230722
  Serious: Yes (Disabling)
  Sender: FDA-Public Use
  Company Number: ES-AMGEN-ESPSP2023067783

PATIENT
  Age: 59 Year
  Sex: Female

DRUGS (1)
  1. MVASI [Suspect]
     Active Substance: BEVACIZUMAB-AWWB
     Indication: Age-related macular degeneration
     Dosage: 25 MILLIGRAM PER MILLILITRE CONCENTRATE FOR SOLUTION FOR INFUSION, 1 VIAL OF 16 ML
     Dates: start: 20221213, end: 20221213

REACTIONS (2)
  - Bacterial endophthalmitis [Recovered/Resolved with Sequelae]
  - Off label use [Unknown]

NARRATIVE: CASE EVENT DATE: 20221213
